FAERS Safety Report 24047826 (Version 1)
Quarter: 2024Q3

REPORT INFORMATION
  Report Type: Report from Study
  Country: US (occurrence: US)
  Receive Date: 20240703
  Receipt Date: 20240703
  Transmission Date: 20241016
  Serious: Yes (Other)
  Sender: TAKEDA
  Company Number: US-TAKEDA-2024TUS065480

PATIENT
  Age: 53 Year
  Sex: Female

DRUGS (1)
  1. VORTIOXETINE [Suspect]
     Active Substance: VORTIOXETINE HYDROBROMIDE
     Indication: Depression
     Dosage: UNK
     Route: 065

REACTIONS (5)
  - Ascites [Unknown]
  - Hepatic function abnormal [Unknown]
  - Hepatic enzyme increased [Unknown]
  - Nausea [Unknown]
  - Vomiting [Unknown]
